FAERS Safety Report 9859255 (Version 1)
Quarter: 2014Q1

REPORT INFORMATION
  Report Type: Spontaneous
  Country: US (occurrence: None)
  Receive Date: 20140129
  Receipt Date: 20140129
  Transmission Date: 20141002
  Serious: Yes (Other)
  Sender: FDA-Public Use
  Company Number: 2014-US-000634

PATIENT
  Age: 46 Year
  Sex: Female
  Weight: 58.8 kg

DRUGS (5)
  1. XYREM (SODIUM OXYBATE) ORAL SOLUTION, 500MG/ML [Suspect]
     Indication: NARCOLEPSY
     Route: 048
     Dates: start: 201003, end: 2010
  2. XYREM (SODIUM OXYBATE) ORAL SOLUTION, 500MG/ML [Suspect]
     Indication: NARCOLEPSY
     Route: 048
     Dates: start: 201003, end: 2010
  3. XYREM (SODIUM OXYBATE) ORAL SOLUTION, 500MG/ML [Suspect]
     Indication: INSOMNIA
     Route: 048
     Dates: start: 201003, end: 2010
  4. PROVIGIL (MODAFINIL) [Suspect]
     Indication: NARCOLEPSY
     Route: 048
  5. VYVANSE (LISDEXAMFETAMINE MESILATE) [Concomitant]

REACTIONS (5)
  - Road traffic accident [None]
  - Insomnia [None]
  - Palpitations [None]
  - Pain [None]
  - Back pain [None]
